FAERS Safety Report 8829658 (Version 1)
Quarter: 2012Q4

REPORT INFORMATION
  Report Type: Spontaneous
  Country: US (occurrence: None)
  Receive Date: 20121005
  Receipt Date: 20121005
  Transmission Date: 20130627
  Serious: Yes (Hospitalization)
  Sender: FDA-Public Use
  Company Number: None

PATIENT
  Age: 66 Year
  Sex: Male
  Weight: 116.4 kg

DRUGS (1)
  1. CLOPIDOGREL [Suspect]
     Dosage: 75 MG MG EVERY DAY PO
     Route: 048
     Dates: start: 20120824, end: 20120911

REACTIONS (6)
  - Angioedema [None]
  - Pruritus [None]
  - Rash [None]
  - Rash [None]
  - Rash [None]
  - Urticaria [None]
